FAERS Safety Report 8350782-1 (Version None)
Quarter: 2012Q2

REPORT INFORMATION
  Report Type: 
  Country: None (occurrence: None)
  Receive Date: 20120510
  Receipt Date: 20120430
  Transmission Date: 20120825
  Serious: Yes (Hospitalization)
  Sender: FDA-Public Use
  Company Number: FR-GLAXOSMITHKLINE-B0798979A

PATIENT
  Sex: Female

DRUGS (8)
  1. TRIVASTAL [Concomitant]
     Route: 065
  2. STABLON [Concomitant]
     Route: 065
  3. PENTOXIFYLLINE [Suspect]
     Indication: PRODUCT USED FOR UNKNOWN INDICATION
     Route: 048
     Dates: start: 20120209, end: 20120220
  4. VALSARTAN  AND HYDROCHLOROTHIAZIDE [Concomitant]
     Route: 065
  5. ARIXTRA [Suspect]
     Indication: PRODUCT USED FOR UNKNOWN INDICATION
     Dosage: 7.5MG PER DAY
     Route: 058
     Dates: start: 20120214, end: 20120218
  6. NEXIUM [Concomitant]
     Route: 065
  7. OXYBUTYNIN [Concomitant]
     Route: 065
  8. LEXOMIL [Concomitant]
     Route: 065

REACTIONS (2)
  - GROIN PAIN [None]
  - MUSCLE HAEMORRHAGE [None]
